FAERS Safety Report 8568567-X (Version None)
Quarter: 2012Q3

REPORT INFORMATION
  Report Type: 
  Country: None (occurrence: None)
  Receive Date: 20120803
  Receipt Date: 20120110
  Transmission Date: 20120928
  Serious: No
  Sender: FDA-Public Use
  Company Number: US-ABBOTT-12P-163-0891744-00

PATIENT
  Sex: Male
  Weight: 111.23 kg

DRUGS (4)
  1. RAMIPRIL [Concomitant]
     Indication: HYPERTENSION
  2. NIASPAN [Suspect]
     Indication: BLOOD CHOLESTEROL INCREASED
     Route: 048
     Dates: start: 20090101, end: 20100101
  3. NIASPAN [Suspect]
     Dates: start: 20100101
  4. FOLBEE [Concomitant]
     Indication: VITAMIN SUPPLEMENTATION

REACTIONS (1)
  - FLUSHING [None]
